FAERS Safety Report 25092788 (Version 1)
Quarter: 2025Q1

REPORT INFORMATION
  Report Type: Spontaneous
  Country: US (occurrence: US)
  Receive Date: 20250319
  Receipt Date: 20250319
  Transmission Date: 20250408
  Serious: Yes (Hospitalization)
  Sender: CSL BEHRING
  Company Number: US-BEH-2025199107

PATIENT
  Sex: Female

DRUGS (17)
  1. HAEGARDA [Suspect]
     Active Substance: HUMAN C1-ESTERASE INHIBITOR
     Indication: Hereditary angioedema
     Dosage: 7000 IU, BIW (2X2000 + 1X3000)
     Route: 058
  2. HAEGARDA [Suspect]
     Active Substance: HUMAN C1-ESTERASE INHIBITOR
     Indication: Prophylaxis
  3. OZEMPIC [Concomitant]
     Active Substance: SEMAGLUTIDE
  4. JANSSEN COVID-19 VACCINE [Concomitant]
     Active Substance: AD26.COV2.S
     Route: 065
  5. ARIPIPRAZOLE [Concomitant]
     Active Substance: ARIPIPRAZOLE
  6. HYDROCODONE [Concomitant]
     Active Substance: HYDROCODONE
  7. TEGRETOL [Concomitant]
     Active Substance: CARBAMAZEPINE
  8. CEPHALEXIN [Concomitant]
     Active Substance: CEPHALEXIN
  9. HYDROCHLOROTHIAZIDE [Concomitant]
     Active Substance: HYDROCHLOROTHIAZIDE
  10. CARBAMAZEPINE [Concomitant]
     Active Substance: CARBAMAZEPINE
  11. EPINEPHRINE [Concomitant]
     Active Substance: EPINEPHRINE
  12. EPITOL [Concomitant]
     Active Substance: CARBAMAZEPINE
  13. FIRAZYR [Concomitant]
     Active Substance: ICATIBANT ACETATE
  14. LIDOCAINE\PRILOCAINE [Concomitant]
     Active Substance: LIDOCAINE\PRILOCAINE
  15. RANITIDINE HYDROCHLORIDE [Concomitant]
     Active Substance: RANITIDINE HYDROCHLORIDE
  16. VENTOLIN [Concomitant]
     Active Substance: ALBUTEROL SULFATE
  17. XARELTO [Concomitant]
     Active Substance: RIVAROXABAN

REACTIONS (2)
  - Gastroenteritis viral [Recovered/Resolved]
  - Product use issue [Recovered/Resolved]
